FAERS Safety Report 13365563 (Version 1)
Quarter: 2017Q1

REPORT INFORMATION
  Report Type: Spontaneous
  Country: US (occurrence: US)
  Receive Date: 20170323
  Receipt Date: 20170323
  Transmission Date: 20170429
  Serious: No
  Sender: FDA-Public Use
  Company Number: US-WARNER CHILCOTT-2016-001027

PATIENT
  Sex: Female

DRUGS (3)
  1. ESTRACE [Suspect]
     Active Substance: ESTRADIOL
     Indication: VULVOVAGINAL DRYNESS
     Dosage: UNK UNK, QD
     Route: 067
  2. BACLOFEN. [Concomitant]
     Active Substance: BACLOFEN
     Dosage: UNK UNK, PRN
     Route: 065
  3. FAMVIR [Concomitant]
     Active Substance: FAMCICLOVIR
     Dosage: UNK UNK, QD
     Route: 065

REACTIONS (2)
  - Application site discharge [Not Recovered/Not Resolved]
  - Product use issue [Not Recovered/Not Resolved]
